FAERS Safety Report 9617192 (Version 1)
Quarter: 2013Q4

REPORT INFORMATION
  Report Type: Spontaneous
  Country: US (occurrence: None)
  Receive Date: 20131011
  Receipt Date: 20131011
  Transmission Date: 20140711
  Serious: Yes (Life-Threatening)
  Sender: FDA-Public Use
  Company Number: None

PATIENT
  Age: 78 Year
  Sex: Male
  Weight: 76.2 kg

DRUGS (1)
  1. FENOFIBRATE [Suspect]
     Indication: BLOOD TRIGLYCERIDES INCREASED
     Dosage: ONE TAB BY MOUTH EVERY DAY, ONCE DAILY, TAKEN BY MOUTH
     Route: 048
     Dates: start: 20130914, end: 20130915

REACTIONS (5)
  - Dyspepsia [None]
  - Angina pectoris [None]
  - Jaundice [None]
  - Polyuria [None]
  - Chromaturia [None]
